FAERS Safety Report 7341380-7 (Version None)
Quarter: 2011Q1

REPORT INFORMATION
  Report Type: 
  Country: None (occurrence: None)
  Receive Date: 20110309
  Receipt Date: 20101213
  Transmission Date: 20110831
  Serious: Yes (Hospitalization, Other)
  Sender: FDA-Public Use
  Company Number: US-BAYER-201025545NA

PATIENT
  Sex: Female
  Weight: 59.41 kg

DRUGS (5)
  1. IBUPROFEN [Concomitant]
  2. YASMIN [Suspect]
     Dosage: 1 TAB/DAY
     Dates: start: 20050801, end: 20051119
  3. YASMIN [Suspect]
     Indication: CONTRACEPTION
     Dosage: 1 TAB/DAY
     Route: 048
     Dates: start: 20040701
  4. NAPROXEN [Concomitant]
     Dosage: UNK
     Dates: start: 20050801
  5. UNCODEABLE ^UNCLASSIFIABLE^ [Concomitant]

REACTIONS (5)
  - DYSPNOEA EXERTIONAL [None]
  - ATELECTASIS [None]
  - PULMONARY EMBOLISM [None]
  - PLEURITIC PAIN [None]
  - PLEURAL EFFUSION [None]
